FAERS Safety Report 24554402 (Version 1)
Quarter: 2024Q4

REPORT INFORMATION
  Report Type: Spontaneous
  Country: AE (occurrence: AE)
  Receive Date: 20241028
  Receipt Date: 20241028
  Transmission Date: 20250115
  Serious: Yes (Other)
  Sender: BOEHRINGER INGELHEIM
  Company Number: AE-BoehringerIngelheim-2024-BI-058303

PATIENT
  Age: 40 Year
  Sex: Male

DRUGS (2)
  1. SYNJARDY [Suspect]
     Active Substance: EMPAGLIFLOZIN\METFORMIN HYDROCHLORIDE
     Indication: Product used for unknown indication
     Dosage: 12.5MG/1000MG
     Route: 048
  2. monjaro [Concomitant]
     Indication: Product used for unknown indication

REACTIONS (3)
  - Pancreatitis [Unknown]
  - Vomiting [Not Recovered/Not Resolved]
  - Abdominal discomfort [Not Recovered/Not Resolved]

NARRATIVE: CASE EVENT DATE: 20241020
